FAERS Safety Report 7748782-5 (Version None)
Quarter: 2011Q3

REPORT INFORMATION
  Report Type: 
  Country: None (occurrence: None)
  Receive Date: 20110913
  Receipt Date: 20110913
  Transmission Date: 20111222
  Serious: No
  Sender: FDA-Public Use
  Company Number: None

PATIENT
  Sex: Male

DRUGS (1)
  1. PEGASPARGASE [Suspect]
     Dosage: INTRAMUSCULAR 1,750 UNITS ONE TIME DOSE

REACTIONS (2)
  - PANCREATITIS ACUTE [None]
  - FATIGUE [None]
